FAERS Safety Report 8509012-X (Version None)
Quarter: 2012Q3

REPORT INFORMATION
  Report Type: 
  Country: None (occurrence: None)
  Receive Date: 20120713
  Receipt Date: 20120705
  Transmission Date: 20120928
  Serious: Yes (Hospitalization, Other)
  Sender: FDA-Public Use
  Company Number: US-ABBOTT-12P-163-0953414-00

PATIENT
  Age: 69 Year
  Sex: Female

DRUGS (10)
  1. GLUCOTROL XL [Concomitant]
     Indication: PRODUCT USED FOR UNKNOWN INDICATION
     Dosage: 5 MG DAILY
     Dates: end: 20120101
  2. HUMIRA [Suspect]
     Indication: CROHN'S DISEASE
     Dates: start: 20081128, end: 20110701
  3. ONGLYZA [Concomitant]
     Indication: DIABETES MELLITUS
     Dosage: 5 MG 1 TAB DAILY
     Dates: start: 20110101
  4. HUMIRA [Suspect]
     Dates: start: 20120101
  5. DILAUDID [Suspect]
     Indication: PRODUCT USED FOR UNKNOWN INDICATION
  6. LANTUS [Concomitant]
     Indication: DIABETES MELLITUS
     Dosage: EVERY MORNING
     Dates: start: 20120101
  7. NORVASC [Concomitant]
     Indication: PRODUCT USED FOR UNKNOWN INDICATION
     Dosage: 2.5 MG DAILY
  8. LISINOPRIL [Concomitant]
     Indication: HYPERTENSION
     Dosage: 10 MG 1 TAB DAILY
  9. NORVASC [Concomitant]
     Dosage: 5 MG DAILY
  10. VITAMIN B-12 [Concomitant]
     Indication: ANAEMIA
     Dosage: MONTHLY

REACTIONS (12)
  - SWOLLEN TONGUE [None]
  - PHARYNGEAL OEDEMA [None]
  - INJECTION SITE NODULE [None]
  - ABDOMINAL PAIN [None]
  - INTESTINAL STENOSIS [None]
  - RASH GENERALISED [None]
  - FAECAL VOMITING [None]
  - OEDEMA MOUTH [None]
  - ABDOMINAL DISTENSION [None]
  - INTESTINAL OBSTRUCTION [None]
  - INJECTION SITE PAIN [None]
  - ANAEMIA [None]
